FAERS Safety Report 7393905-3 (Version None)
Quarter: 2011Q2

REPORT INFORMATION
  Report Type: 
  Country: None (occurrence: None)
  Receive Date: 20110405
  Receipt Date: 20110323
  Transmission Date: 20111010
  Serious: Yes (Other)
  Sender: FDA-Public Use
  Company Number: US-JNJFOC-20110103758

PATIENT
  Sex: Male
  Weight: 95.26 kg

DRUGS (4)
  1. DEMEROL [Interacting]
     Indication: ANALGESIC THERAPY
     Route: 030
  2. NUCYNTA [Suspect]
     Indication: PAIN
     Route: 048
  3. NUCYNTA [Suspect]
     Indication: ANALGESIC THERAPY
     Route: 048
  4. ATIVAN [Interacting]
     Indication: ANALGESIC THERAPY
     Route: 030

REACTIONS (4)
  - ANAEMIA [None]
  - SYNCOPE [None]
  - RESPIRATORY DEPRESSION [None]
  - DRUG INTERACTION [None]
